FAERS Safety Report 5921371-0 (Version None)
Quarter: 2008Q4

REPORT INFORMATION
  Report Type: 
  Country: None (occurrence: None)
  Receive Date: 20081014
  Receipt Date: 20080929
  Transmission Date: 20090506
  Serious: Yes (Hospitalization, Other)
  Sender: FDA-Public Use
  Company Number: 100#08#2008-04947

PATIENT
  Age: 45 Year
  Sex: Female

DRUGS (4)
  1. ATENOLOL [Suspect]
     Indication: DRUG USE FOR UNKNOWN INDICATION
  2. NIFEDIPINE [Suspect]
     Indication: DRUG USE FOR UNKNOWN INDICATION
  3. COUMADIN [Concomitant]
  4. BENZODIAZEPINES (UNKNOWN) [Concomitant]

REACTIONS (22)
  - ALANINE AMINOTRANSFERASE INCREASED [None]
  - ASPARTATE AMINOTRANSFERASE INCREASED [None]
  - ATRIOVENTRICULAR BLOCK FIRST DEGREE [None]
  - BLOOD LACTATE DEHYDROGENASE INCREASED [None]
  - BLOOD POTASSIUM INCREASED [None]
  - CELL DEATH [None]
  - CEREBRAL HAEMORRHAGE [None]
  - COMA [None]
  - DIALYSIS [None]
  - DRUG LEVEL ABOVE THERAPEUTIC [None]
  - GASTROINTESTINAL HYPOMOTILITY [None]
  - HEART RATE DECREASED [None]
  - HYPOTENSION [None]
  - INTERNATIONAL NORMALISED RATIO DECREASED [None]
  - LABORATORY TEST ABNORMAL [None]
  - LOSS OF CONSCIOUSNESS [None]
  - METABOLIC ACIDOSIS [None]
  - MULTI-ORGAN FAILURE [None]
  - OVERDOSE [None]
  - RESPIRATORY ACIDOSIS [None]
  - RHABDOMYOLYSIS [None]
  - WHITE BLOOD CELL COUNT INCREASED [None]
